FAERS Safety Report 13368748 (Version 2)
Quarter: 2017Q2

REPORT INFORMATION
  Report Type: Spontaneous
  Country: GB (occurrence: GB)
  Receive Date: 20170324
  Receipt Date: 20170622
  Transmission Date: 20170830
  Serious: Yes (Other)
  Sender: FDA-Public Use
  Company Number: GB-009507513-1703GBR008929

PATIENT
  Age: 31 Year
  Sex: Female
  Weight: 120 kg

DRUGS (1)
  1. NEXPLANON [Suspect]
     Active Substance: ETONOGESTREL
     Indication: CONTRACEPTION
     Dosage: 1 UNK, 3 YEARS
     Route: 058
     Dates: start: 20170227, end: 20170317

REACTIONS (1)
  - Haematoma infection [Recovered/Resolved]

NARRATIVE: CASE EVENT DATE: 20170315
